FAERS Safety Report 6427815-2 (Version None)
Quarter: 2009Q4

REPORT INFORMATION
  Report Type: 
  Country: None (occurrence: None)
  Receive Date: 20091104
  Receipt Date: 20091104
  Transmission Date: 20100525
  Serious: Yes (Other)
  Sender: FDA-Public Use
  Company Number: None

PATIENT
  Age: 54 Year
  Sex: Female
  Weight: 57.6068 kg

DRUGS (2)
  1. AMPHETAMINE SULFATE [Suspect]
     Indication: ATTENTION DEFICIT/HYPERACTIVITY DISORDER
     Dosage: 10 MG (OF 20 MG) DAILY ORAL (DONT HAVE ORIGINAL BOTTLES OR MEDICINE)
     Route: 048
     Dates: start: 20090301, end: 20090601
  2. AMPHETAMINE SULFATE [Suspect]
     Dosage: 10 MG (OF 20 MG) DAILY ORAL
     Route: 048
     Dates: start: 20091001

REACTIONS (11)
  - AMENORRHOEA [None]
  - CHEST PAIN [None]
  - DIARRHOEA [None]
  - DRY MOUTH [None]
  - DYSPNOEA [None]
  - INSOMNIA [None]
  - MENOPAUSE [None]
  - NIGHT SWEATS [None]
  - PRODUCT SUBSTITUTION ISSUE [None]
  - SKIN DISORDER [None]
  - THIRST [None]
